FAERS Safety Report 13778606 (Version 2)
Quarter: 2017Q3

REPORT INFORMATION
  Report Type: Spontaneous
  Country: US (occurrence: US)
  Receive Date: 20170721
  Receipt Date: 20170825
  Transmission Date: 20171127
  Serious: No
  Sender: FDA-Public Use
  Company Number: US-ACTELION-A-US2016-133871

PATIENT
  Age: 61 Year
  Sex: Female
  Weight: 49.89 kg

DRUGS (9)
  1. COUMADIN [Concomitant]
     Active Substance: WARFARIN SODIUM
     Dosage: 2.5 MG, UNK
  2. ADCIRCA [Concomitant]
     Active Substance: TADALAFIL
  3. LISINOPRIL. [Concomitant]
     Active Substance: LISINOPRIL
     Dosage: 2.5 MG, UNK
  4. ESTRADIOL. [Concomitant]
     Active Substance: ESTRADIOL
  5. COSOPT FREE [Concomitant]
  6. METRONIDAZOLE. [Concomitant]
     Active Substance: METRONIDAZOLE
  7. LASIX [Concomitant]
     Active Substance: FUROSEMIDE
  8. VELETRI [Suspect]
     Active Substance: EPOPROSTENOL
     Indication: PULMONARY ARTERIAL HYPERTENSION
     Dosage: 38 NG/KG, PER MIN
     Route: 042
     Dates: start: 20140917
  9. AMIODARONE [Concomitant]
     Active Substance: AMIODARONE
     Dosage: 200 MG, UNK

REACTIONS (8)
  - Device damage [Unknown]
  - Device leakage [Unknown]
  - Medical device change [Unknown]
  - Catheter site infection [Recovered/Resolved]
  - Catheter site oedema [Unknown]
  - Catheter site erythema [Recovered/Resolved]
  - Catheter site discharge [Recovered/Resolved]
  - Flushing [Unknown]

NARRATIVE: CASE EVENT DATE: 20160621
